FAERS Safety Report 23953698 (Version 3)
Quarter: 2024Q3

REPORT INFORMATION
  Report Type: Report from Study
  Country: US (occurrence: US)
  Receive Date: 20240608
  Receipt Date: 20240910
  Transmission Date: 20241017
  Serious: Yes (Hospitalization)
  Sender: ROCHE
  Company Number: US-ROCHE-3578255

PATIENT
  Age: 76 Year
  Sex: Male

DRUGS (9)
  1. OCRELIZUMAB [Suspect]
     Active Substance: OCRELIZUMAB
     Indication: Multiple sclerosis
     Dosage: NEXT DOSE ON 12/NOV/2020
     Route: 042
     Dates: start: 20201029
  2. OCRELIZUMAB [Suspect]
     Active Substance: OCRELIZUMAB
     Dosage: NEXT DOSE ON 03/NOV/2021, 04/MAY/2022, 04/NOV/2022, 12/MAY/2023
     Route: 042
     Dates: start: 20210429
  3. OCRELIZUMAB [Suspect]
     Active Substance: OCRELIZUMAB
     Dosage: NEXT DOSE ON 03/NOV/2021, 04/MAY/2022, 04/NOV/2022, 12/MAY/2023, 20/NOV/2023
     Route: 042
     Dates: start: 20231103
  4. ZOLPIDEM [Concomitant]
     Active Substance: ZOLPIDEM TARTRATE
     Indication: Anxiety
     Dates: start: 20180409
  5. CLONAZEPAM [Concomitant]
     Active Substance: CLONAZEPAM
     Indication: Anxiety
     Dates: start: 20160518
  6. SERTRALINE [Concomitant]
     Active Substance: SERTRALINE HYDROCHLORIDE
     Indication: Anxiety
     Dates: start: 20220810
  7. TAMSULOSIN [Concomitant]
     Active Substance: TAMSULOSIN
     Indication: Prostatomegaly
     Dates: start: 20200812
  8. TIZANIDINE [Concomitant]
     Active Substance: TIZANIDINE
     Dates: start: 20220810
  9. VITAMIN D3 [Concomitant]
     Active Substance: CHOLECALCIFEROL
     Indication: Nutritional supplementation
     Dates: start: 20160518

REACTIONS (1)
  - Urinary tract infection [Recovered/Resolved]

NARRATIVE: CASE EVENT DATE: 20240301
